FAERS Safety Report 6128697-9 (Version None)
Quarter: 2009Q1

REPORT INFORMATION
  Report Type: 
  Country: None (occurrence: None)
  Receive Date: 20090323
  Receipt Date: 20090311
  Transmission Date: 20090719
  Serious: Yes (Other)
  Sender: FDA-Public Use
  Company Number: US-PFIZER INC-2009170523

PATIENT
  Sex: Female
  Weight: 81.63 kg

DRUGS (10)
  1. CHANTIX [Suspect]
     Indication: SMOKING CESSATION THERAPY
     Dosage: 0.5 MG, 1X/DAY
     Dates: start: 20090205, end: 20090213
  2. NOVOLIN 70/30 [Concomitant]
     Indication: DIABETES MELLITUS
     Dosage: UNK
  3. ACTOS [Concomitant]
     Indication: DIABETES MELLITUS
     Dosage: 30 MG, UNK
  4. METFORMIN [Concomitant]
     Indication: DIABETES MELLITUS
     Dosage: 500 MG, 2X/DAY
  5. ZESTRIL [Concomitant]
     Dosage: UNK
  6. CELEBREX [Concomitant]
     Dosage: 200 MG, UNK
  7. TRAZODONE [Concomitant]
     Dosage: 50 MG, UNK
  8. ZOCOR [Concomitant]
     Dosage: 80 MG, UNK
  9. NEXIUM [Concomitant]
     Dosage: 40 MG, UNK
  10. ZETIA [Concomitant]
     Dosage: 10 MG, UNK

REACTIONS (7)
  - AGITATION [None]
  - CONSTIPATION [None]
  - HYPERTENSION [None]
  - MALAISE [None]
  - NAUSEA [None]
  - VARICOSE VEIN RUPTURED [None]
  - VOMITING [None]
